FAERS Safety Report 8096743-1 (Version None)
Quarter: 2012Q1

REPORT INFORMATION
  Report Type: 
  Country: None (occurrence: None)
  Receive Date: 20120129
  Receipt Date: 20111110
  Transmission Date: 20120608
  Serious: No
  Sender: FDA-Public Use
  Company Number: US-ABBOTT-11P-163-0856983-00

PATIENT
  Sex: Female
  Weight: 61.29 kg

DRUGS (2)
  1. HUMIRA [Suspect]
     Indication: CROHN'S DISEASE
     Dates: start: 20100901, end: 20110801
  2. VITAMIN B-12 [Concomitant]
     Indication: VITAMIN B12 DEFICIENCY

REACTIONS (6)
  - RASH [None]
  - ADVERSE DRUG REACTION [None]
  - ASTHENIA [None]
  - DIZZINESS [None]
  - APHASIA [None]
  - MOBILITY DECREASED [None]
